FAERS Safety Report 13638089 (Version 3)
Quarter: 2019Q1

REPORT INFORMATION
  Report Type: Spontaneous
  Country: CA (occurrence: CA)
  Receive Date: 20170609
  Receipt Date: 20190307
  Transmission Date: 20190417
  Serious: Yes (Other)
  Sender: FDA-Public Use
  Company Number: CA-CELLTRION INC.-2017CA005624

PATIENT

DRUGS (14)
  1. INFLECTRA [Suspect]
     Active Substance: INFLIXIMAB-DYYB
     Dosage: 5 MG/KG, FOR 2 INFUSIONS AT 2 WEEKS APART, THEN EVERY 8 WEEKS
     Route: 042
     Dates: start: 20170518, end: 20171005
  2. ZOPICLONE [Concomitant]
     Active Substance: ZOPICLONE
     Dosage: 5 MG, DAILY AT BEDTIME
     Route: 048
     Dates: start: 2016
  3. CANDESARTAN SANDOZ [Concomitant]
     Active Substance: CANDESARTAN
     Dosage: 8 MG TWICE DAILY
     Route: 048
     Dates: start: 2004
  4. INFLECTRA [Suspect]
     Active Substance: INFLIXIMAB-DYYB
     Indication: PSORIATIC ARTHROPATHY
     Dosage: 255 MG, (EVERY 2, 6 WEEKS, THEN EVERY 8 WEEKS) (FIRST INFUSION)
     Route: 042
     Dates: start: 20170504, end: 20170504
  5. INFLECTRA [Suspect]
     Active Substance: INFLIXIMAB-DYYB
     Dosage: 425 MG, (EVERY 5 WEEKS)
     Route: 042
     Dates: start: 20181120
  6. PREDNISONE. [Concomitant]
     Active Substance: PREDNISONE
     Dosage: 20 MG, 1X/DAY
     Route: 048
     Dates: start: 20170412
  7. TYLENOL WITH CODEINE [Concomitant]
     Active Substance: ACETAMINOPHEN\CODEINE PHOSPHATE
     Dosage: 60 MG, 2X/DAY
     Route: 065
     Dates: start: 201704
  8. VIAGRA [Concomitant]
     Active Substance: SILDENAFIL CITRATE
  9. DULOXETINE. [Concomitant]
     Active Substance: DULOXETINE
     Dosage: UNK
     Dates: start: 20170512
  10. INFLECTRA [Suspect]
     Active Substance: INFLIXIMAB-DYYB
     Dosage: 425 MG, (EVERY 6 WEEKS)
     Route: 042
     Dates: start: 20171130, end: 20181018
  11. PREGABALIN. [Concomitant]
     Active Substance: PREGABALIN
     Dosage: 50 MG THREE TIMES DAILY
     Route: 065
     Dates: start: 2015
  12. METHOTREXATE. [Concomitant]
     Active Substance: METHOTREXATE
     Dosage: 25 MG, UNK
     Dates: start: 201607
  13. ATORVASTATIN [Concomitant]
     Active Substance: ATORVASTATIN
     Dosage: UNK
     Dates: start: 2004
  14. NEXIUM [Concomitant]
     Active Substance: ESOMEPRAZOLE MAGNESIUM
     Dosage: 40 MG, UNK
     Route: 048
     Dates: start: 1980

REACTIONS (8)
  - Unresponsive to stimuli [Unknown]
  - Blood pressure increased [Unknown]
  - Product use issue [Unknown]
  - Eye swelling [Unknown]
  - Pallor [Not Recovered/Not Resolved]
  - Asthenia [Not Recovered/Not Resolved]
  - Furuncle [Unknown]
  - Confusional state [Unknown]

NARRATIVE: CASE EVENT DATE: 201705
